FAERS Safety Report 19975473 (Version 2)
Quarter: 2021Q4

REPORT INFORMATION
  Report Type: Other
  Country: CA (occurrence: CA)
  Receive Date: 20211021
  Receipt Date: 20211206
  Transmission Date: 20220303
  Serious: Yes (Other)
  Sender: FDA-Public Use
  Company Number: CA-CELLTRION INC.-2021CA014147

PATIENT

DRUGS (6)
  1. RITUXIMAB [Suspect]
     Active Substance: RITUXIMAB
     Indication: Microscopic polyangiitis
     Dosage: 500.0 MILLIGRAM
     Route: 042
  2. RITUXIMAB [Suspect]
     Active Substance: RITUXIMAB
     Indication: Granulomatosis with polyangiitis
     Dosage: UNK
     Route: 065
  3. AMLODIPINE [Concomitant]
     Active Substance: AMLODIPINE BESYLATE
     Dosage: 5.0 MILLIGRAM, 1 EVERY 1 DAYS
     Route: 048
  4. BISOPROLOL [Concomitant]
     Active Substance: BISOPROLOL
     Dosage: 2.5 MILLIGRAM, EVERY 1 DAYS
     Route: 048
  5. DAPSONE [Concomitant]
     Active Substance: DAPSONE
     Dosage: 100.0 MILLIGRAM, 1 EVERY 1 DAYS
     Route: 048
  6. NAPROXEN [Concomitant]
     Active Substance: NAPROXEN
     Dosage: 500.0 MILLIGRAM
     Route: 065

REACTIONS (8)
  - Antineutrophil cytoplasmic antibody positive [Unknown]
  - Aortitis [Unknown]
  - Deafness [Unknown]
  - Lung neoplasm malignant [Unknown]
  - Pneumonitis [Unknown]
  - Otitis media [Unknown]
  - Sinusitis [Unknown]
  - Off label use [Unknown]
